FAERS Safety Report 6881768-1 (Version None)
Quarter: 2010Q3

REPORT INFORMATION
  Report Type: 
  Country: None (occurrence: None)
  Receive Date: 20100728
  Receipt Date: 20100728
  Transmission Date: 20110219
  Serious: Yes (Disabling, Other)
  Sender: FDA-Public Use
  Company Number: None

PATIENT
  Sex: Female
  Weight: 69.8539 kg

DRUGS (1)
  1. METOCLOPRAMIDE [Suspect]
     Indication: GASTROOESOPHAGEAL REFLUX DISEASE
     Dosage: 10 MG ONC TAB 1/2 HR A.C. BY MOUTH
     Route: 048
     Dates: start: 20050101, end: 20100101

REACTIONS (5)
  - APHASIA [None]
  - BRADYKINESIA [None]
  - COGNITIVE DISORDER [None]
  - DYSKINESIA [None]
  - TARDIVE DYSKINESIA [None]
